FAERS Safety Report 10142736 (Version 1)
Quarter: 2014Q2

REPORT INFORMATION
  Report Type: Spontaneous
  Country: US (occurrence: None)
  Receive Date: 20140429
  Receipt Date: 20140429
  Transmission Date: 20141212
  Serious: No
  Sender: FDA-Public Use
  Company Number: None

PATIENT
  Age: 43 Year
  Sex: Male

DRUGS (1)
  1. TRUVADA [Suspect]
     Route: 048
     Dates: start: 20131017

REACTIONS (3)
  - Dizziness [None]
  - Confusional state [None]
  - Vision blurred [None]
